FAERS Safety Report 23637418 (Version 1)
Quarter: 2024Q1

REPORT INFORMATION
  Report Type: Spontaneous
  Country: FR (occurrence: FR)
  Receive Date: 20240315
  Receipt Date: 20240315
  Transmission Date: 20240410
  Serious: Yes (Other)
  Sender: FDA-Public Use
  Company Number: None

PATIENT
  Age: 70 Year
  Sex: Male

DRUGS (7)
  1. PIPERACILLIN SODIUM\TAZOBACTAM SODIUM [Suspect]
     Active Substance: PIPERACILLIN SODIUM\TAZOBACTAM SODIUM
     Indication: COVID-19 pneumonia
     Dosage: 4 G, 4X/DAY
     Route: 042
     Dates: start: 20230127, end: 20230202
  2. FLUCONAZOLE [Suspect]
     Active Substance: FLUCONAZOLE
     Indication: Oral candidiasis
     Dosage: 200 MG, 1X/DAY
     Route: 042
     Dates: start: 20230127
  3. LENALIDOMIDE [Suspect]
     Active Substance: LENALIDOMIDE
     Indication: Disseminated large cell lymphoma
     Dosage: UNK
     Route: 048
     Dates: start: 20220101, end: 20221216
  4. LENALIDOMIDE [Suspect]
     Active Substance: LENALIDOMIDE
     Dosage: UNK
     Route: 048
     Dates: start: 20230127, end: 20230130
  5. CHLORPROMAZINE [Suspect]
     Active Substance: CHLORPROMAZINE
     Indication: Mental disorder
     Dosage: 5 DROP, 1X/DAY, IF NEEDED
     Route: 048
     Dates: start: 20230131, end: 20230207
  6. LOVENOX [Suspect]
     Active Substance: ENOXAPARIN SODIUM
     Indication: Thrombosis prophylaxis
     Dosage: 4000 IU, 1X/DAY
     Route: 058
     Dates: start: 20230131
  7. MEROPENEM [Suspect]
     Active Substance: MEROPENEM
     Indication: COVID-19 pneumonia
     Dosage: 240 MG, 1X/DAY
     Route: 042
     Dates: start: 20230203, end: 20230208

REACTIONS (3)
  - Cholestasis [Recovered/Resolved]
  - Hepatocellular injury [Recovered/Resolved]
  - Off label use [Unknown]

NARRATIVE: CASE EVENT DATE: 20230127
